FAERS Safety Report 4285957-4 (Version None)
Quarter: 2004Q1

REPORT INFORMATION
  Report Type: 
  Country: None (occurrence: None)
  Receive Date: 20040203
  Receipt Date: 20040122
  Transmission Date: 20041129
  Serious: Yes (Death, Life-Threatening)
  Sender: FDA-Public Use
  Company Number: 2004EU000155

PATIENT
  Age: 40 Year
  Sex: Female

DRUGS (3)
  1. PROGRAF [Suspect]
     Indication: BONE MARROW TRANSPLANT
     Dosage: ORAL
     Route: 048
     Dates: start: 20031105, end: 20031118
  2. NEORAL [Suspect]
     Dates: start: 20030922, end: 20031104
  3. GANCICLOVIR SODIUM [Suspect]
     Dosage: INTRAVENOUS
     Route: 042
     Dates: start: 20031114

REACTIONS (9)
  - CONVULSION [None]
  - CYTOMEGALOVIRUS INFECTION [None]
  - GRAFT VERSUS HOST DISEASE [None]
  - HAEMOLYTIC ANAEMIA [None]
  - PYREXIA [None]
  - SERRATIA INFECTION [None]
  - THROMBOCYTOPENIA [None]
  - THROMBOTIC THROMBOCYTOPENIC PURPURA [None]
  - URINARY TRACT INFECTION [None]
